FAERS Safety Report 9193296 (Version 3)
Quarter: 2013Q4

REPORT INFORMATION
  Report Type: Spontaneous
  Country: US (occurrence: None)
  Receive Date: 20120703
  Receipt Date: 20131226
  Transmission Date: 20140711
  Serious: Yes (Hospitalization)
  Sender: FDA-Public Use
  Company Number: PHEH2012US009960

PATIENT
  Age: 39 Year
  Sex: Male
  Weight: 86.6 kg

DRUGS (2)
  1. GILENYA [Suspect]
     Indication: MULTIPLE SCLEROSIS
     Route: 048
     Dates: start: 20120510
  2. VITAMIN B12 (CYANOCOBALAMIN) [Concomitant]

REACTIONS (6)
  - Bradycardia [None]
  - Nausea [None]
  - Dizziness [None]
  - Dyspnoea [None]
  - Heart rate decreased [None]
  - Malaise [None]
